FAERS Safety Report 8676088 (Version 7)
Quarter: 2013Q2

REPORT INFORMATION
  Report Type: Spontaneous
  Country: US (occurrence: US)
  Receive Date: 20120720
  Receipt Date: 20130516
  Transmission Date: 20140414
  Serious: Yes (Hospitalization, Disabling, Other)
  Sender: FDA-Public Use
  Company Number: US-009507513-1207USA004484

PATIENT
  Sex: Female
  Weight: 59.41 kg

DRUGS (7)
  1. FOSAMAX [Suspect]
     Indication: OSTEOPOROSIS
     Dosage: 35 MG, QW
     Route: 048
     Dates: start: 200307, end: 200510
  2. FOSAMAX [Suspect]
     Indication: OSTEOPENIA
     Dosage: 70 MG, QW
     Route: 048
     Dates: start: 20040601, end: 200804
  3. FOSAMAX [Suspect]
     Indication: OSTEOPENIA
     Dosage: 70 MG, QW
     Route: 048
     Dates: start: 20080224, end: 20100624
  4. FOSAMAX [Suspect]
     Indication: OSTEOPOROSIS
  5. VITAMINS (UNSPECIFIED) [Concomitant]
     Dosage: UNK
     Dates: start: 2000
  6. CALCIUM (UNSPECIFIED) [Concomitant]
     Dosage: UNK
     Dates: start: 2000
  7. ALENDRONATE SODIUM [Suspect]
     Dosage: 70 MG, UNK
     Route: 048

REACTIONS (57)
  - Femur fracture [Unknown]
  - Orthopaedic procedure [Unknown]
  - Knee arthroplasty [Unknown]
  - Open reduction of fracture [Unknown]
  - Knee arthroplasty [Unknown]
  - Femur fracture [Unknown]
  - Periprosthetic fracture [Unknown]
  - Neoplasm malignant [Unknown]
  - Breast mass [Unknown]
  - Arthrotomy [Unknown]
  - Arthroscopy [Unknown]
  - Removal of internal fixation [Unknown]
  - Osteoarthritis [Unknown]
  - Osteoporosis [Unknown]
  - Rotator cuff repair [Unknown]
  - Stress fracture [Unknown]
  - Bone density decreased [Unknown]
  - Bone disorder [Unknown]
  - Fracture [Unknown]
  - Vitamin D deficiency [Unknown]
  - Wrong technique in drug usage process [Unknown]
  - Vertigo positional [Unknown]
  - Osteoarthritis [Unknown]
  - Impaired healing [Unknown]
  - Meniscus injury [Unknown]
  - Benign neoplasm [Unknown]
  - Morton^s neuroma [Unknown]
  - Sinusitis [Unknown]
  - Joint surgery [Unknown]
  - Arthropathy [Unknown]
  - Mammary duct ectasia [Unknown]
  - Fibroadenoma of breast [Unknown]
  - Scar [Unknown]
  - Metaplasia [Unknown]
  - Fibrocystic breast disease [Unknown]
  - Breast hyperplasia [Unknown]
  - Urinary tract infection [Unknown]
  - Urinary tract infection [Unknown]
  - Hypertension [Unknown]
  - Dermoid cyst [Unknown]
  - Dermatitis allergic [Unknown]
  - Contrast media allergy [Unknown]
  - Carpal tunnel syndrome [Unknown]
  - Ovarian cystectomy [Unknown]
  - Hyperlipidaemia [Unknown]
  - Patellofemoral pain syndrome [Unknown]
  - Oedema [Unknown]
  - Cerumen impaction [Unknown]
  - Venous insufficiency [Unknown]
  - Blood iron decreased [Unknown]
  - Pain [Unknown]
  - Sinusitis [Unknown]
  - Upper respiratory tract infection [Unknown]
  - Wrong technique in drug usage process [Unknown]
  - Drug hypersensitivity [Unknown]
  - Gastrooesophageal reflux disease [Unknown]
  - Constipation [Unknown]
